FAERS Safety Report 5009175-7 (Version None)
Quarter: 2006Q2

REPORT INFORMATION
  Report Type: 
  Country: None (occurrence: None)
  Receive Date: 20060519
  Receipt Date: 20060509
  Transmission Date: 20061013
  Serious: Yes (Hospitalization, Other)
  Sender: FDA-Public Use
  Company Number: 2006AL001172

PATIENT
  Age: 32 Year
  Sex: Female

DRUGS (3)
  1. TRAZODONE HCL [Suspect]
     Dosage: 100MG;QD;PO
     Route: 048
     Dates: start: 20040124, end: 20041101
  2. VALPROIC ACID [Concomitant]
  3. LAMOTRIGINE [Concomitant]

REACTIONS (22)
  - ANAEMIA [None]
  - CHEST X-RAY ABNORMAL [None]
  - DEPRESSED LEVEL OF CONSCIOUSNESS [None]
  - DEPRESSION [None]
  - DISEASE RECURRENCE [None]
  - DRUG LEVEL INCREASED [None]
  - DYSPHAGIA [None]
  - ELECTROLYTE IMBALANCE [None]
  - HAEMORRHAGE [None]
  - HEPATIC FUNCTION ABNORMAL [None]
  - HYPOALBUMINAEMIA [None]
  - LYMPHADENOPATHY [None]
  - MUCOUS MEMBRANE DISORDER [None]
  - OXYGEN SATURATION DECREASED [None]
  - PHARYNGOLARYNGEAL PAIN [None]
  - PYREXIA [None]
  - SCAB [None]
  - SUICIDAL BEHAVIOUR [None]
  - THROMBOCYTOPENIA [None]
  - TONSILLAR HYPERTROPHY [None]
  - TOXIC EPIDERMAL NECROLYSIS [None]
  - TREATMENT NONCOMPLIANCE [None]
